FAERS Safety Report 13303293 (Version 1)
Quarter: 2017Q1

REPORT INFORMATION
  Report Type: Spontaneous
  Country: US (occurrence: US)
  Receive Date: 20170307
  Receipt Date: 20170307
  Transmission Date: 20170428
  Serious: No
  Sender: FDA-Public Use
  Company Number: US-TEVA-699301USA

PATIENT
  Age: 43 Year
  Sex: Male

DRUGS (4)
  1. VIAGRA [Concomitant]
     Active Substance: SILDENAFIL CITRATE
  2. REVATIO [Concomitant]
     Active Substance: SILDENAFIL CITRATE
  3. CHANTIX [Concomitant]
     Active Substance: VARENICLINE TARTRATE
  4. ETODOLAC. [Suspect]
     Active Substance: ETODOLAC
     Route: 065

REACTIONS (2)
  - Drug hypersensitivity [Unknown]
  - Abdominal discomfort [Unknown]

NARRATIVE: CASE EVENT DATE: 20030407
